FAERS Safety Report 19877890 (Version 1)
Quarter: 2021Q3

REPORT INFORMATION
  Report Type: Spontaneous
  Country: US (occurrence: US)
  Receive Date: 20210923
  Receipt Date: 20210923
  Transmission Date: 20211014
  Serious: No
  Sender: FDA-Public Use
  Company Number: US-INSUD PHARMA-2109US00990

PATIENT

DRUGS (3)
  1. PROGESTERONE. [Suspect]
     Active Substance: PROGESTERONE
     Indication: VAGINAL HAEMORRHAGE
     Dosage: 200 MILLIGRAM
     Route: 065
     Dates: start: 20210830
  2. PFIZER?BIONTECH COVID?19 VACCINE [Suspect]
     Active Substance: TOZINAMERAN
     Indication: PROPHYLAXIS
     Dosage: FIRST DOSE, INJECTION IN RIGHT ARM, LATE AFTERNOON
     Route: 030
     Dates: start: 20210512, end: 20210512
  3. PFIZER?BIONTECH COVID?19 VACCINE [Suspect]
     Active Substance: TOZINAMERAN
     Dosage: SECOND DOSE, INJECTION IN RIGHT ARM, MID AFTERNOON
     Route: 030
     Dates: start: 20210729, end: 20210729

REACTIONS (1)
  - Therapeutic product effect incomplete [Not Recovered/Not Resolved]

NARRATIVE: CASE EVENT DATE: 2021
